FAERS Safety Report 14950338 (Version 1)
Quarter: 2018Q2

REPORT INFORMATION
  Report Type: Spontaneous
  Country: DE (occurrence: DE)
  Receive Date: 20180530
  Receipt Date: 20180530
  Transmission Date: 20180711
  Serious: Yes (Other)
  Sender: FDA-Public Use
  Company Number: DE-AUROBINDO-AUR-APL-2017-46255

PATIENT
  Age: 39 Year
  Sex: Male
  Weight: 61 kg

DRUGS (3)
  1. REVAXIS [Suspect]
     Active Substance: DIPHTHERIA AND TETANUS TOXOIDS AND POLIOVIRUS VACCINE ANTIGENS
     Indication: IMMUNISATION
     Dosage: 1 DF
     Route: 030
     Dates: start: 20160405, end: 20160405
  2. CIPROFLOXACIN. [Suspect]
     Active Substance: CIPROFLOXACIN
     Indication: PROSTATE INFECTION
     Dosage: 500 MG, UNK
     Route: 048
     Dates: start: 20160513
  3. LEVOFLOXACIN. [Suspect]
     Active Substance: LEVOFLOXACIN
     Indication: PROSTATE INFECTION
     Dosage: 500 MG, UNK
     Route: 048
     Dates: start: 20160513

REACTIONS (15)
  - Vitreous floaters [Recovering/Resolving]
  - Tinnitus [Recovering/Resolving]
  - Muscular weakness [Not Recovered/Not Resolved]
  - Arrhythmia [Not Recovered/Not Resolved]
  - Asthenia [Not Recovered/Not Resolved]
  - Musculoskeletal stiffness [Not Recovered/Not Resolved]
  - Skin burning sensation [Recovering/Resolving]
  - Neuropathy peripheral [Not Recovered/Not Resolved]
  - Dyspepsia [Unknown]
  - Tremor [Recovering/Resolving]
  - Paraesthesia [Not Recovered/Not Resolved]
  - Joint noise [Not Recovered/Not Resolved]
  - Chills [Recovering/Resolving]
  - Arthralgia [Not Recovered/Not Resolved]
  - Pruritus [Not Recovered/Not Resolved]

NARRATIVE: CASE EVENT DATE: 20160513
